FAERS Safety Report 4767972-7 (Version None)
Quarter: 2005Q3

REPORT INFORMATION
  Report Type: 
  Country: None (occurrence: None)
  Receive Date: 20050913
  Receipt Date: 20050830
  Transmission Date: 20060218
  Serious: Yes (Hospitalization)
  Sender: FDA-Public Use
  Company Number: US-2005-004905

PATIENT
  Age: 72 Year
  Sex: Male
  Weight: 65.8 kg

DRUGS (2)
  1. ULTRAVIST 300 [Suspect]
     Indication: COMPUTERISED TOMOGRAM ABDOMEN
     Dosage: 150 ML, 1 DOSE, INTRAVENOUS
     Route: 042
     Dates: start: 20050329, end: 20050329
  2. FLUORODEOXYGLUCOSE F 18 (FLUDEOXYGLUCOSE (18F)) [Concomitant]

REACTIONS (5)
  - CHEST PAIN [None]
  - MULTI-ORGAN FAILURE [None]
  - PYREXIA [None]
  - SEPTIC SHOCK [None]
  - URINARY TRACT INFECTION [None]
